FAERS Safety Report 6147106-7 (Version None)
Quarter: 2009Q2

REPORT INFORMATION
  Report Type: 
  Country: None (occurrence: None)
  Receive Date: 20090402
  Receipt Date: 20090312
  Transmission Date: 20091009
  Serious: Yes (Hospitalization)
  Sender: FDA-Public Use
  Company Number: JPI-P-006397

PATIENT
  Age: 57 Year
  Sex: Male

DRUGS (14)
  1. LUVOX [Suspect]
     Indication: AFFECTIVE DISORDER
     Dosage: (50 MG,1 D),ORAL ; (100 MG,1 D),ORAL ; (150 MG,1 D),ORAL ; (100 MG,1 D),ORAL ; 150 MG,1 D),ORAL
     Route: 048
     Dates: start: 20080905, end: 20080918
  2. LUVOX [Suspect]
     Indication: AFFECTIVE DISORDER
     Dosage: (50 MG,1 D),ORAL ; (100 MG,1 D),ORAL ; (150 MG,1 D),ORAL ; (100 MG,1 D),ORAL ; 150 MG,1 D),ORAL
     Route: 048
     Dates: start: 20080919, end: 20081002
  3. LUVOX [Suspect]
     Indication: AFFECTIVE DISORDER
     Dosage: (50 MG,1 D),ORAL ; (100 MG,1 D),ORAL ; (150 MG,1 D),ORAL ; (100 MG,1 D),ORAL ; 150 MG,1 D),ORAL
     Route: 048
     Dates: start: 20081003, end: 20081113
  4. LUVOX [Suspect]
     Indication: AFFECTIVE DISORDER
     Dosage: (50 MG,1 D),ORAL ; (100 MG,1 D),ORAL ; (150 MG,1 D),ORAL ; (100 MG,1 D),ORAL ; 150 MG,1 D),ORAL
     Route: 048
     Dates: start: 20081114, end: 20090122
  5. LUVOX [Suspect]
     Indication: AFFECTIVE DISORDER
     Dosage: (50 MG,1 D),ORAL ; (100 MG,1 D),ORAL ; (150 MG,1 D),ORAL ; (100 MG,1 D),ORAL ; 150 MG,1 D),ORAL
     Route: 048
     Dates: start: 20090123
  6. FLUNITRAZEPAM [Concomitant]
  7. ZOLPIDEM TARTRATE [Concomitant]
  8. MILNACIPRAN HYDROCHLORIDE [Concomitant]
  9. TEPRENONE [Concomitant]
  10. ATENOLOL [Concomitant]
  11. TANDOSPIRONE CITRATE [Concomitant]
  12. LEVOMEPROMAZINE MALEATE [Concomitant]
  13. HOCHU-EKKI-TO [Concomitant]
  14. CLOXAZOLAM [Concomitant]

REACTIONS (1)
  - EPILEPSY [None]
